FAERS Safety Report 19185448 (Version 1)
Quarter: 2021Q2

REPORT INFORMATION
  Report Type: Spontaneous
  Country: CH (occurrence: CH)
  Receive Date: 20210427
  Receipt Date: 20210427
  Transmission Date: 20210717
  Serious: Yes (Other)
  Sender: FDA-Public Use
  Company Number: CH-AMGEN-CHESP2021060984

PATIENT
  Age: 53 Year
  Sex: Female

DRUGS (2)
  1. EVEROLIMUS. [Concomitant]
     Active Substance: EVEROLIMUS
     Indication: METASTATIC UTERINE CANCER
     Dosage: 10 MILLIGRAM, QD
     Route: 048
  2. XGEVA [Suspect]
     Active Substance: DENOSUMAB
     Indication: METASTASES TO BONE
     Dosage: 120 MILLIGRAM, QMO
     Route: 058

REACTIONS (4)
  - Metastases to skin [Recovering/Resolving]
  - Toxicity to various agents [Unknown]
  - Metastases to bone [Unknown]
  - Metastases to lung [Unknown]
